FAERS Safety Report 25549912 (Version 1)
Quarter: 2025Q3

REPORT INFORMATION
  Report Type: Spontaneous
  Country: US (occurrence: US)
  Receive Date: 20250714
  Receipt Date: 20250714
  Transmission Date: 20251021
  Serious: No
  Sender: NOVO NORDISK
  Company Number: US-NOVOPROD-1253576

PATIENT
  Age: 72 Year
  Sex: Female
  Weight: 58.96 kg

DRUGS (3)
  1. SEMAGLUTIDE [Suspect]
     Active Substance: SEMAGLUTIDE
     Indication: Product used for unknown indication
  2. DUPILUMAB [Concomitant]
     Active Substance: DUPILUMAB
     Route: 058
     Dates: start: 20240509
  3. DUPILUMAB [Concomitant]
     Active Substance: DUPILUMAB
     Indication: Dermatitis atopic
     Route: 058
     Dates: start: 20240202

REACTIONS (8)
  - Pruritus [Recovering/Resolving]
  - Skin haemorrhage [Unknown]
  - Skin fissures [Unknown]
  - Erythema [Recovering/Resolving]
  - Body height decreased [Unknown]
  - Weight decreased [Unknown]
  - Injection site pain [Recovering/Resolving]
  - Intentional product misuse [Unknown]
